FAERS Safety Report 8091195-X (Version None)
Quarter: 2012Q1

REPORT INFORMATION
  Report Type: 
  Country: None (occurrence: None)
  Receive Date: 20120129
  Receipt Date: 20110921
  Transmission Date: 20120608
  Serious: No
  Sender: FDA-Public Use
  Company Number: US-ABBOTT-11P-163-0856618-00

PATIENT
  Sex: Female

DRUGS (2)
  1. BIRTH CONTROL PILLS [Concomitant]
     Indication: PRODUCT USED FOR UNKNOWN INDICATION
     Dates: end: 20110901
  2. HUMIRA [Suspect]
     Indication: HIDRADENITIS
     Dates: start: 20110628

REACTIONS (2)
  - CYST [None]
  - TENDERNESS [None]
